FAERS Safety Report 24691971 (Version 2)
Quarter: 2024Q4

REPORT INFORMATION
  Report Type: Spontaneous
  Country: US (occurrence: US)
  Receive Date: 20241203
  Receipt Date: 20241217
  Transmission Date: 20250114
  Serious: Yes (Disabling, Other)
  Sender: ORGANON
  Company Number: US-MLMSERVICE-20241120-PI263596-00226-1

PATIENT
  Age: 57 Year
  Sex: Female

DRUGS (1)
  1. REMERON [Suspect]
     Active Substance: MIRTAZAPINE
     Indication: Anxiety
     Dosage: 45 MG NIGHTLY
     Route: 048

REACTIONS (2)
  - Ototoxicity [Recovered/Resolved]
  - Product use in unapproved indication [Unknown]
